FAERS Safety Report 7440578-7 (Version None)
Quarter: 2011Q2

REPORT INFORMATION
  Report Type: 
  Country: None (occurrence: None)
  Receive Date: 20110427
  Receipt Date: 20101116
  Transmission Date: 20111010
  Serious: Yes (Other)
  Sender: FDA-Public Use
  Company Number: B0685199A

PATIENT
  Age: 60 Year
  Sex: Male
  Weight: 59 kg

DRUGS (12)
  1. PROTECADIN [Concomitant]
     Dosage: 20MG PER DAY
     Route: 048
     Dates: start: 20100301
  2. SEROTONE [Concomitant]
     Dosage: 10MG PER DAY
     Route: 042
     Dates: start: 20100301, end: 20100302
  3. PRIMPERAN TAB [Concomitant]
     Dosage: 10MG PER DAY
     Dates: start: 20100305, end: 20100306
  4. MAXIPIME [Concomitant]
     Dosage: 4G PER DAY
     Route: 042
     Dates: start: 20100309, end: 20100315
  5. ALKERAN [Suspect]
     Indication: STEM CELL TRANSPLANT
     Dosage: 160MG PER DAY
     Route: 042
     Dates: start: 20100301, end: 20100302
  6. ZOVIRAX [Concomitant]
     Dosage: 1000MG PER DAY
     Route: 048
     Dates: start: 20100301, end: 20100308
  7. VICCLOX [Concomitant]
     Dosage: 500MG PER DAY
     Route: 042
     Dates: start: 20100309, end: 20100316
  8. ZANTAC [Concomitant]
     Dosage: 100MG PER DAY
     Dates: start: 20100309, end: 20100317
  9. LOPEMIN [Concomitant]
     Dosage: 1MG PER DAY
     Route: 048
     Dates: start: 20100304, end: 20100318
  10. GRAN [Concomitant]
     Dates: start: 20100308, end: 20100315
  11. FUNGUARD [Concomitant]
     Dosage: 50MG PER DAY
     Route: 042
     Dates: start: 20100309, end: 20100315
  12. ITRIZOLE [Concomitant]
     Dosage: 200MG PER DAY
     Route: 048
     Dates: start: 20100301, end: 20100308

REACTIONS (2)
  - DIARRHOEA [None]
  - FEBRILE NEUTROPENIA [None]
